FAERS Safety Report 11893567 (Version 2)
Quarter: 2016Q2

REPORT INFORMATION
  Report Type: Report from Study
  Country: US (occurrence: US)
  Receive Date: 20160106
  Receipt Date: 20160603
  Transmission Date: 20160815
  Serious: Yes (Hospitalization)
  Sender: FDA-Public Use
  Company Number: US-ACTELION-A-US2015-128872

PATIENT
  Age: 75 Year
  Sex: Female

DRUGS (4)
  1. REVATIO [Concomitant]
     Active Substance: SILDENAFIL CITRATE
  2. VENTAVIS [Suspect]
     Active Substance: ILOPROST
     Dosage: 5 MCG, 4-5X/DAY
     Route: 055
     Dates: start: 20160531
  3. VENTAVIS [Suspect]
     Active Substance: ILOPROST
     Indication: PULMONARY ARTERIAL HYPERTENSION
     Dosage: 5 MCG, UNK
     Route: 055
     Dates: start: 20130520
  4. LETAIRIS [Concomitant]
     Active Substance: AMBRISENTAN

REACTIONS (8)
  - Pneumonia [Unknown]
  - Pain [Unknown]
  - Cardiac failure congestive [Unknown]
  - Influenza [Unknown]
  - Pericardial effusion [Unknown]
  - Peripheral swelling [Recovering/Resolving]
  - Pulmonary oedema [Unknown]
  - Nasopharyngitis [Unknown]
